FAERS Safety Report 8800925 (Version 1)
Quarter: 2012Q4

REPORT INFORMATION
  Report Type: 
  Country: BR (occurrence: BR)
  Receive Date: 20120921
  Receipt Date: 20120921
  Transmission Date: 20130627
  Serious: Yes (Death)
  Sender: FDA-Public Use
  Company Number: BR-ASTRAZENECA-2012SE72602

PATIENT
  Age: 74 Year
  Sex: Female

DRUGS (1)
  1. SELOZOK [Suspect]
     Indication: CARDIAC FAILURE CONGESTIVE
     Route: 048

REACTIONS (2)
  - Death [Fatal]
  - Drug dose omission [Fatal]
